FAERS Safety Report 16581642 (Version 1)
Quarter: 2019Q3

REPORT INFORMATION
  Report Type: Spontaneous
  Country: US (occurrence: US)
  Receive Date: 20190716
  Receipt Date: 20190716
  Transmission Date: 20191004
  Serious: Yes (Hospitalization)
  Sender: FDA-Public Use
  Company Number: US-US WORLDMEDS, LLC-USW201904-000819

PATIENT
  Sex: Male

DRUGS (2)
  1. XADAGO [Suspect]
     Active Substance: SAFINAMIDE MESYLATE
     Indication: PARKINSON^S DISEASE
  2. XADAGO [Suspect]
     Active Substance: SAFINAMIDE MESYLATE

REACTIONS (2)
  - Heart rate decreased [Unknown]
  - Blood pressure increased [Unknown]
